FAERS Safety Report 4363651-9 (Version None)
Quarter: 2004Q2

REPORT INFORMATION
  Report Type: 
  Country: None (occurrence: None)
  Receive Date: 20040517
  Receipt Date: 20040413
  Transmission Date: 20050107
  Serious: No
  Sender: FDA-Public Use
  Company Number: S04-USA-02107-01

PATIENT
  Age: 71 Year
  Sex: Male

DRUGS (12)
  1. NAMENDA [Suspect]
     Indication: DEMENTIA ALZHEIMER'S TYPE
     Dosage: 10 MG QD PO
     Route: 048
     Dates: start: 20040221, end: 20040227
  2. NAMENDA [Suspect]
     Indication: DEMENTIA ALZHEIMER'S TYPE
     Dosage: 15 MG QD PO
     Route: 048
     Dates: start: 20040228, end: 20040305
  3. NAMENDA [Suspect]
     Indication: DEMENTIA ALZHEIMER'S TYPE
     Dosage: 20 MG QD PO
     Route: 048
     Dates: start: 20040306, end: 20040101
  4. NAMENDA [Suspect]
     Indication: DEMENTIA ALZHEIMER'S TYPE
     Dosage: 15 MG QD PO
     Route: 048
     Dates: start: 20040101
  5. NAMENDA [Suspect]
     Indication: DEMENTIA ALZHEIMER'S TYPE
     Dosage: 5 MG QD PO
     Route: 048
     Dates: start: 20040214, end: 20040220
  6. ARICEPT [Concomitant]
  7. ZOLOFT [Concomitant]
  8. LISINOPRIL [Concomitant]
  9. HYDROCHLORORTHIAZIDE [Concomitant]
  10. PROCRIT (ERYTHROPOIETIN) [Concomitant]
  11. ASPIRIN [Concomitant]
  12. VITAMIN E [Concomitant]

REACTIONS (2)
  - CONFUSIONAL STATE [None]
  - URINARY INCONTINENCE [None]
